FAERS Safety Report 5014924-8 (Version None)
Quarter: 2006Q2

REPORT INFORMATION
  Report Type: 
  Country: None (occurrence: None)
  Receive Date: 20060531
  Receipt Date: 20060519
  Transmission Date: 20061013
  Serious: Yes (Hospitalization)
  Sender: FDA-Public Use
  Company Number: FR-ROCHE-448760

PATIENT
  Age: 58 Year
  Sex: Male
  Weight: 61 kg

DRUGS (8)
  1. ROCEPHIN [Suspect]
     Indication: DRUG USE FOR UNKNOWN INDICATION
     Route: 042
     Dates: start: 20060214, end: 20060215
  2. TOPREC [Suspect]
     Indication: DRUG USE FOR UNKNOWN INDICATION
     Route: 048
     Dates: start: 20060203, end: 20060213
  3. CLAMOXYL [Suspect]
     Indication: DRUG USE FOR UNKNOWN INDICATION
     Route: 048
     Dates: start: 20060206, end: 20060213
  4. EFFERALGAN [Suspect]
     Indication: HEADACHE
     Dosage: REPORTED ADDITIONAL INDICATION TERMS: DYSPHAGIA, NECK PAIN.
     Route: 048
     Dates: start: 20060214, end: 20060215
  5. DETURGYLONE [Concomitant]
     Dates: start: 20060206
  6. VIRLIX [Concomitant]
     Dates: start: 20060206
  7. CLARITIN [Concomitant]
     Dosage: REPORTED AS CLARYTINE.
     Dates: start: 20060213
  8. MYCOSTATIN [Concomitant]
     Dates: start: 20060213

REACTIONS (1)
  - HENOCH-SCHONLEIN PURPURA [None]
